FAERS Safety Report 4607547-3 (Version None)
Quarter: 2005Q1

REPORT INFORMATION
  Report Type: 
  Country: None (occurrence: None)
  Receive Date: 20050309
  Receipt Date: 20050228
  Transmission Date: 20050727
  Serious: Yes (Hospitalization, Other)
  Sender: FDA-Public Use
  Company Number: A-CH2004-07776

PATIENT
  Age: 74 Year
  Sex: Female

DRUGS (3)
  1. TRACLEER [Suspect]
     Indication: PULMONARY HYPERTENSION
     Dosage: 62.5 MG, BID, ORAL ; 125 MG, BID, ORAL
     Route: 048
     Dates: start: 20030326, end: 20030424
  2. TRACLEER [Suspect]
     Indication: PULMONARY HYPERTENSION
     Dosage: 62.5 MG, BID, ORAL ; 125 MG, BID, ORAL
     Route: 048
     Dates: start: 20030425
  3. MARCUMAR [Concomitant]

REACTIONS (33)
  - ACUTE PRERENAL FAILURE [None]
  - ALANINE AMINOTRANSFERASE INCREASED [None]
  - ASCITES [None]
  - ASPARTATE AMINOTRANSFERASE INCREASED [None]
  - ATRIAL HYPERTROPHY [None]
  - ATRIAL TACHYCARDIA [None]
  - BLOOD BILIRUBIN INCREASED [None]
  - BUNDLE BRANCH BLOCK RIGHT [None]
  - CARDIOMEGALY [None]
  - DISEASE PROGRESSION [None]
  - DIVERTICULUM INTESTINAL [None]
  - DYSPNOEA [None]
  - ECHOCARDIOGRAM ABNORMAL [None]
  - ELECTROCARDIOGRAM QT PROLONGED [None]
  - GENERAL PHYSICAL HEALTH DETERIORATION [None]
  - HAEMODIALYSIS [None]
  - HAEMORRHOIDAL HAEMORRHAGE [None]
  - HAEMORRHOIDS [None]
  - HYPERTHYROIDISM [None]
  - HYPOTENSION [None]
  - IRON DEFICIENCY ANAEMIA [None]
  - LIVER FUNCTION TEST ABNORMAL [None]
  - LOWER GASTROINTESTINAL HAEMORRHAGE [None]
  - PANCREAS LIPOMATOSIS [None]
  - PERITONEAL DIALYSIS [None]
  - PLEURAL EFFUSION [None]
  - PULMONARY ARTERIAL PRESSURE INCREASED [None]
  - RIGHT VENTRICULAR FAILURE [None]
  - TRICUSPID VALVE INCOMPETENCE [None]
  - VARICES OESOPHAGEAL [None]
  - VEIN DISORDER [None]
  - VENTRICULAR HYPERTROPHY [None]
  - WEIGHT INCREASED [None]
